FAERS Safety Report 4983647-3 (Version None)
Quarter: 2006Q2

REPORT INFORMATION
  Report Type: 
  Country: None (occurrence: None)
  Receive Date: 20060425
  Receipt Date: 20060425
  Transmission Date: 20061013
  Serious: Yes (Hospitalization)
  Sender: FDA-Public Use
  Company Number: None

PATIENT
  Age: 86 Year
  Sex: Male
  Weight: 113.8529 kg

DRUGS (31)
  1. FUROSEMIDE [Suspect]
     Indication: CARDIAC FAILURE CONGESTIVE
     Dosage: PATIENT SOMETIMES ADJUSTS OWN MEDS
  2. FUROSEMIDE [Suspect]
     Indication: DIABETES MELLITUS
     Dosage: PATIENT SOMETIMES ADJUSTS OWN MEDS
  3. FUROSEMIDE [Suspect]
     Indication: HYPERTENSION
     Dosage: PATIENT SOMETIMES ADJUSTS OWN MEDS
  4. LISINOPRIL [Suspect]
  5. METOLAZONE [Suspect]
  6. NAPROXEN [Suspect]
  7. . [Concomitant]
  8. . [Concomitant]
  9. . [Concomitant]
  10. . [Concomitant]
  11. . [Concomitant]
  12. . [Concomitant]
  13. . [Concomitant]
  14. . [Concomitant]
  15. . [Concomitant]
  16. . [Concomitant]
  17. . [Concomitant]
  18. . [Concomitant]
  19. . [Concomitant]
  20. . [Concomitant]
  21. . [Concomitant]
  22. . [Concomitant]
  23. . [Concomitant]
  24. . [Concomitant]
  25. . [Concomitant]
  26. . [Concomitant]
  27. . [Concomitant]
  28. . [Concomitant]
  29. . [Concomitant]
  30. . [Concomitant]
  31. . [Concomitant]

REACTIONS (2)
  - BLOOD CREATININE INCREASED [None]
  - HYPOTENSION [None]
